FAERS Safety Report 7090334-7 (Version None)
Quarter: 2010Q4

REPORT INFORMATION
  Report Type: 
  Country: None (occurrence: None)
  Receive Date: 20101109
  Receipt Date: 20101029
  Transmission Date: 20110411
  Serious: Yes (Hospitalization)
  Sender: FDA-Public Use
  Company Number: FR-JNJFOC-20101100361

PATIENT
  Age: 66 Year
  Sex: Female

DRUGS (9)
  1. TAVANIC [Suspect]
     Indication: INTERVERTEBRAL DISCITIS
     Route: 048
  2. ORBENIN CAP [Suspect]
     Indication: INTERVERTEBRAL DISCITIS
     Route: 042
  3. PARACETAMOL [Concomitant]
     Route: 065
  4. AVANDAMET [Concomitant]
     Route: 065
  5. METFORMIN HCL [Concomitant]
     Route: 065
  6. KARDEGIC [Concomitant]
     Route: 065
  7. OMEPRAZOLE [Concomitant]
     Route: 065
  8. VALSARTAN/HYDROCHLOORTHIAZIDE [Concomitant]
     Route: 065
  9. LOVENOX [Concomitant]
     Route: 065

REACTIONS (3)
  - RENAL FAILURE ACUTE [None]
  - TOOTH ABSCESS [None]
  - TUBULOINTERSTITIAL NEPHRITIS [None]
